FAERS Safety Report 25844723 (Version 1)
Quarter: 2025Q3

REPORT INFORMATION
  Report Type: Other
  Country: CN (occurrence: CN)
  Receive Date: 20250925
  Receipt Date: 20250925
  Transmission Date: 20251020
  Serious: Yes (Life-Threatening, Hospitalization, Other)
  Sender: QILU PHARMACEUTICAL
  Company Number: CN-QILU PHARMACEUTICAL CO.LTD.-QLU-000241-2025

PATIENT
  Age: 24 Year
  Sex: Male
  Weight: 79 kg

DRUGS (3)
  1. OLANZAPINE [Suspect]
     Active Substance: OLANZAPINE
     Indication: Depression
     Dosage: 20 MG ONCE DAILY (TOTAL OF 4 TABLETS)
     Route: 048
     Dates: start: 20250917, end: 20250917
  2. LORAZEPAM [Suspect]
     Active Substance: LORAZEPAM
     Indication: Insomnia
     Dosage: 8 MG ONCE DAILY (TOTAL 8 TABLETS)
     Route: 048
     Dates: start: 20250917, end: 20250917
  3. OXAZEPAM [Suspect]
     Active Substance: OXAZEPAM
     Indication: Insomnia
     Dosage: 30 MG ONCE DAILY (TOTAL 30 TABLETS)
     Route: 048
     Dates: start: 20250917, end: 20250917

REACTIONS (6)
  - Hyponatraemia [Recovered/Resolved]
  - Sopor [Recovered/Resolved]
  - Somnolence [Recovered/Resolved]
  - Stupor [Recovered/Resolved]
  - Intentional overdose [Recovered/Resolved]
  - Product use in unapproved indication [Recovered/Resolved]

NARRATIVE: CASE EVENT DATE: 20250917
